FAERS Safety Report 6258171-0 (Version None)
Quarter: 2009Q3

REPORT INFORMATION
  Report Type: 
  Country: None (occurrence: None)
  Receive Date: 20090702
  Receipt Date: 20090702
  Transmission Date: 20100115
  Serious: Yes (Life-Threatening, Other)
  Sender: FDA-Public Use
  Company Number: None

PATIENT
  Age: 25 Year
  Sex: Male
  Weight: 66.6788 kg

DRUGS (4)
  1. NAPROXEN [Suspect]
  2. TRAMADOL HCL [Suspect]
  3. CIPRO [Suspect]
  4. TOBRAMYCIN [Suspect]

REACTIONS (2)
  - ARTHROPOD BITE [None]
  - DRUG HYPERSENSITIVITY [None]
